FAERS Safety Report 10755513 (Version 1)
Quarter: 2015Q1

REPORT INFORMATION
  Report Type: Spontaneous
  Country: US (occurrence: None)
  Receive Date: 20150123
  Receipt Date: 20150123
  Transmission Date: 20150721
  Serious: Yes (Hospitalization)
  Sender: FDA-Public Use
  Company Number: 2014TUS009133

PATIENT
  Age: 42 Year
  Sex: Female
  Weight: 78.5 kg

DRUGS (7)
  1. REQUIP XL (ROPINIROLE HYDROCHLORIDE) [Concomitant]
  2. PREDNISONE. [Concomitant]
     Active Substance: PREDNISONE
  3. CELEXA/00582602/ (CITALOPRAM HYDROBROMIDE) [Concomitant]
  4. SEROQUEL [Concomitant]
     Active Substance: QUETIAPINE FUMARATE
  5. ATENOLOL (AZATHIOPRINE) [Concomitant]
  6. ENTYVIO [Suspect]
     Active Substance: VEDOLIZUMAB
     Indication: CROHN^S DISEASE
     Dosage: 300 MG, ONE DOSE
     Route: 042
     Dates: start: 20140911, end: 20140911
  7. DEXILANT [Concomitant]
     Active Substance: DEXLANSOPRAZOLE

REACTIONS (4)
  - Rash pruritic [None]
  - C-reactive protein increased [None]
  - Pyrexia [None]
  - White blood cell count increased [None]

NARRATIVE: CASE EVENT DATE: 20140923
